FAERS Safety Report 16139128 (Version 2)
Quarter: 2022Q2

REPORT INFORMATION
  Report Type: Other
  Country: CA (occurrence: CA)
  Receive Date: 20190401
  Receipt Date: 20220614
  Transmission Date: 20220721
  Serious: Yes (Other)
  Sender: FDA-Public Use
  Company Number: CA-ASTELLAS-2019US013346

PATIENT
  Age: 38 Year
  Sex: Male

DRUGS (23)
  1. AMPHOTERICIN B [Suspect]
     Active Substance: AMPHOTERICIN B
     Indication: Endophthalmitis
     Dosage: UNK, UNKNOWN FREQ.
     Route: 047
  2. TACROLIMUS [Suspect]
     Active Substance: TACROLIMUS
     Indication: Immunosuppressant drug therapy
     Dosage: UNK UNK, UNKNOWN FREQ.
     Route: 065
  3. CEFTAZIDIME [Suspect]
     Active Substance: CEFTAZIDIME
     Indication: Endophthalmitis
     Dosage: UNK UNK, UNKNOWN FREQ.
     Route: 047
  4. CIPROFLOXACIN [Suspect]
     Active Substance: CIPROFLOXACIN
     Indication: Endophthalmitis
     Dosage: UNK UNK, UNKNOWN FREQ.
     Route: 065
  5. COLISTIN [Suspect]
     Active Substance: COLISTIN
     Indication: Pseudomonas infection
     Dosage: UNK UNK, UNKNOWN FREQ.
     Route: 065
  6. HOMATROPINE HYDROBROMIDE [Suspect]
     Active Substance: HOMATROPINE HYDROBROMIDE
     Indication: Iridocyclitis
     Dosage: UNK UNK, TWICE DAILY
     Route: 047
  7. LINEZOLID [Suspect]
     Active Substance: LINEZOLID
     Indication: Endophthalmitis
     Dosage: UNK UNK, UNKNOWN FREQ.
     Route: 042
  8. MAXIDEX [Suspect]
     Active Substance: DEXAMETHASONE
     Indication: Iridocyclitis
     Route: 047
  9. MOXIFLOXACIN HYDROCHLORIDE [Suspect]
     Active Substance: MOXIFLOXACIN HYDROCHLORIDE
     Indication: Endophthalmitis
     Dosage: UNK UNK, UNKNOWN FREQ.
     Route: 047
  10. MYCOPHENOLATE MOFETIL [Suspect]
     Active Substance: MYCOPHENOLATE MOFETIL
     Indication: Immunosuppressant drug therapy
     Dosage: UNK UNK, UNKNOWN FREQ.
     Route: 065
  11. PREDNISOLONE SODIUM PHOSPHATE [Suspect]
     Active Substance: PREDNISOLONE SODIUM PHOSPHATE
     Indication: Iridocyclitis
     Dosage: UNK UNK, UNKNOWN FREQ.
     Route: 047
  12. PREDNISONE [Suspect]
     Active Substance: PREDNISONE
     Indication: Uveitis
     Dosage: UNK UNK, UNKNOWN FREQ.
     Route: 065
  13. PREDNISONE [Suspect]
     Active Substance: PREDNISONE
     Indication: Immunosuppressant drug therapy
     Dosage: UNK, UNKNOWN FREQ.
     Route: 048
  14. SALICYLIC ACID\TRIAMCINOLONE ACETONIDE [Suspect]
     Active Substance: SALICYLIC ACID\TRIAMCINOLONE ACETONIDE
     Indication: Uveitis
     Dosage: UNK UNK, UNKNOWN FREQ.
     Route: 065
  15. TOBRAMYCIN [Suspect]
     Active Substance: TOBRAMYCIN
     Indication: Pseudomonas infection
     Dosage: UNK UNK, UNKNOWN FREQ.
     Route: 042
  16. VANCOMYCIN [Suspect]
     Active Substance: VANCOMYCIN
     Indication: Pseudomonas infection
     Dosage: UNK UNK, UNKNOWN FREQ.
     Route: 047
  17. VANCOMYCIN [Suspect]
     Active Substance: VANCOMYCIN
     Indication: Endophthalmitis
  18. VORICONAZOLE [Suspect]
     Active Substance: VORICONAZOLE
     Indication: Endophthalmitis
     Dosage: UNK UNK, UNKNOWN FREQ.
     Route: 065
  19. PIPERACILLIN SODIUM [Suspect]
     Active Substance: PIPERACILLIN SODIUM
     Indication: Endophthalmitis
     Dosage: UNK UNK, UNKNOWN FREQ.
     Route: 065
  20. TAZOBACTAM SODIUM [Suspect]
     Active Substance: TAZOBACTAM SODIUM
     Indication: Endophthalmitis
     Dosage: UNK UNK, UNKNOWN FREQ.
     Route: 065
  21. TRIAMCINOLONE ACETONIDE [Suspect]
     Active Substance: TRIAMCINOLONE ACETONIDE
     Indication: Uveitis
     Dosage: UNK UNK, UNKNOWN FREQ.
     Route: 065
  22. DEXAMETHASONE SODIUM PHOSPHATE [Concomitant]
     Active Substance: DEXAMETHASONE SODIUM PHOSPHATE
     Indication: Iridocyclitis
     Dosage: UNK UNK, UNKNOWN FREQ.
     Route: 065
  23. HOMATROPINE [Concomitant]
     Active Substance: HOMATROPINE HYDROBROMIDE
     Indication: Iridocyclitis
     Dosage: UNK UNK, TWICE DAILY
     Route: 065

REACTIONS (10)
  - Choroiditis [Not Recovered/Not Resolved]
  - Condition aggravated [Not Recovered/Not Resolved]
  - Eye pain [Not Recovered/Not Resolved]
  - Intraocular pressure increased [Not Recovered/Not Resolved]
  - Uveitis [Not Recovered/Not Resolved]
  - Visual acuity reduced [Not Recovered/Not Resolved]
  - Endophthalmitis [Not Recovered/Not Resolved]
  - Visual impairment [Not Recovered/Not Resolved]
  - Product use issue [Unknown]
  - Drug ineffective [Unknown]
